FAERS Safety Report 11310798 (Version 1)
Quarter: 2015Q3

REPORT INFORMATION
  Report Type: Spontaneous
  Country: US (occurrence: US)
  Receive Date: 20150726
  Receipt Date: 20150726
  Transmission Date: 20151125
  Serious: Yes (Other)
  Sender: FDA-Public Use
  Company Number: US-CIPLA LTD.-2015US05960

PATIENT

DRUGS (4)
  1. PACLITAXEL. [Suspect]
     Active Substance: PACLITAXEL
     Indication: TRIPLE NEGATIVE BREAST CANCER
     Dosage: 6 CYCLES (OF 28 DAYS) OF 30 MIN IV INFUSION WITH 70 MG/M2, ON DAYS 1, 8, AND 15
  2. CARBOPLATIN. [Suspect]
     Active Substance: CARBOPLATIN
     Indication: TRIPLE NEGATIVE BREAST CANCER
     Dosage: 6 CYCLES (OF 28 DAYS) OF AUC 5.0 ON DAY 1
     Route: 042
  3. SUNITINIB [Suspect]
     Active Substance: SUNITINIB
     Dosage: MAINTENANCE THERAPY AT 25 MG ORALLY ONCE DAILY
     Route: 048
  4. SUNITINIB [Suspect]
     Active Substance: SUNITINIB
     Indication: TRIPLE NEGATIVE BREAST CANCER
     Dosage: 6 CYCLES (OF 28 DAYS) AT 25 MG ORALLY, ONCE DAILY FOR EVERY 21 DAYS
     Route: 048

REACTIONS (1)
  - Toxicity to various agents [Unknown]
